FAERS Safety Report 6028733-4 (Version None)
Quarter: 2009Q1

REPORT INFORMATION
  Report Type: 
  Country: None (occurrence: None)
  Receive Date: 20090105
  Receipt Date: 20090105
  Transmission Date: 20090719
  Serious: No
  Sender: FDA-Public Use
  Company Number: None

PATIENT
  Age: 73 Year
  Sex: Male
  Weight: 92.99 kg

DRUGS (1)
  1. COLESTIPOL [Suspect]
     Indication: HYPERLIPIDAEMIA
     Dosage: 2 GM BID PO
     Route: 048
     Dates: start: 20080612, end: 20081212

REACTIONS (1)
  - CONSTIPATION [None]
